FAERS Safety Report 16306680 (Version 2)
Quarter: 2019Q2

REPORT INFORMATION
  Report Type: Spontaneous
  Country: DE (occurrence: DE)
  Receive Date: 20190513
  Receipt Date: 20190610
  Transmission Date: 20190711
  Serious: Yes (Life-Threatening, Hospitalization, Other)
  Sender: FDA-Public Use
  Company Number: PHHY2019DE106333

PATIENT
  Sex: Female
  Weight: 63 kg

DRUGS (2)
  1. VIGAMOX [Suspect]
     Active Substance: MOXIFLOXACIN HYDROCHLORIDE
     Indication: CONJUNCTIVITIS BACTERIAL
     Dosage: UNK
     Route: 047
     Dates: start: 2010
  2. AVALOX [Interacting]
     Active Substance: MOXIFLOXACIN HYDROCHLORIDE
     Indication: PNEUMONIA
     Dosage: UNK
     Route: 048
     Dates: start: 2010

REACTIONS (11)
  - Flushing [Unknown]
  - Eye irritation [Recovered/Resolved]
  - Drug hypersensitivity [Unknown]
  - Pneumonia [Unknown]
  - Drug interaction [Unknown]
  - Hypotension [Unknown]
  - Anaphylactic reaction [Unknown]
  - Circulatory collapse [Unknown]
  - Conjunctival irritation [Recovered/Resolved]
  - Urticaria [Unknown]
  - Erythema [Unknown]

NARRATIVE: CASE EVENT DATE: 2010
